FAERS Safety Report 10017933 (Version 1)
Quarter: 2014Q1

REPORT INFORMATION
  Report Type: Spontaneous
  Country: US (occurrence: US)
  Receive Date: 20140318
  Receipt Date: 20140318
  Transmission Date: 20141002
  Serious: No
  Sender: FDA-Public Use
  Company Number: US-BRISTOL-MYERS SQUIBB COMPANY-18871962

PATIENT
  Age: 82 Year
  Sex: Female
  Weight: 72.11 kg

DRUGS (1)
  1. ERBITUX [Suspect]
     Indication: MASS
     Dosage: EVERY WEDNESDAY
     Dates: start: 201304

REACTIONS (3)
  - Feeling abnormal [Unknown]
  - Decreased appetite [Unknown]
  - Vomiting [Unknown]
